FAERS Safety Report 13219367 (Version 5)
Quarter: 2017Q2

REPORT INFORMATION
  Report Type: Report from Study
  Country: US (occurrence: US)
  Receive Date: 20170210
  Receipt Date: 20170502
  Transmission Date: 20170830
  Serious: No
  Sender: FDA-Public Use
  Company Number: US-ALEXION PHARMACEUTICALS INC.-A201701216

PATIENT
  Sex: Male

DRUGS (1)
  1. SOLIRIS [Suspect]
     Active Substance: ECULIZUMAB
     Indication: PAROXYSMAL NOCTURNAL HAEMOGLOBINURIA
     Dosage: UNK
     Route: 042

REACTIONS (8)
  - Haematocrit abnormal [Unknown]
  - Blood lactate dehydrogenase increased [Unknown]
  - Mean cell volume abnormal [Unknown]
  - Reticulocyte count increased [Unknown]
  - White blood cell count abnormal [Unknown]
  - Red blood cell count abnormal [Unknown]
  - Haemoglobin abnormal [Unknown]
  - Mean cell haemoglobin concentration abnormal [Unknown]

NARRATIVE: CASE EVENT DATE: 20170131
